FAERS Safety Report 6287459-2 (Version None)
Quarter: 2009Q3

REPORT INFORMATION
  Report Type: 
  Country: None (occurrence: None)
  Receive Date: 20090727
  Receipt Date: 20090715
  Transmission Date: 20100115
  Serious: Yes (Hospitalization)
  Sender: FDA-Public Use
  Company Number: GXKR2009GB08077

PATIENT
  Age: 82 Year
  Sex: Female

DRUGS (3)
  1. ALENDRONIC ACID (NGX) (ALENDRONIC ACID) UNKNOWN [Suspect]
     Indication: OSTEOPOROSIS
     Dosage: 70 MG/WEEK
  2. ALENDRONIC ACID (NGX) (ALENDRONIC ACID) UNKNOWN [Suspect]
     Indication: OSTEOPOROTIC FRACTURE
     Dosage: 70 MG/WEEK
  3. ALENDRONIC ACID (NGX) (ALENDRONIC ACID) UNKNOWN [Suspect]
     Indication: PROPHYLAXIS
     Dosage: 70 MG/WEEK

REACTIONS (2)
  - FEMUR FRACTURE [None]
  - PATHOLOGICAL FRACTURE [None]
